FAERS Safety Report 5598011-6 (Version None)
Quarter: 2008Q1

REPORT INFORMATION
  Report Type: 
  Country: None (occurrence: None)
  Receive Date: 20080122
  Receipt Date: 20080114
  Transmission Date: 20080703
  Serious: No
  Sender: FDA-Public Use
  Company Number: TR-BAXTER-2008BH000415

PATIENT
  Age: 40 Year
  Sex: Male
  Weight: 66 kg

DRUGS (7)
  1. EXTRANEAL [Suspect]
     Indication: PERITONEAL DIALYSIS
     Route: 033
     Dates: start: 20071112, end: 20071205
  2. EXTRANEAL [Suspect]
     Route: 033
     Dates: start: 20080107, end: 20080110
  3. FERRO ^SANOL^ [Concomitant]
     Indication: RENAL FAILURE
     Route: 048
  4. LASIX [Concomitant]
     Indication: RENAL FAILURE
     Route: 048
  5. PHOS-EX [Concomitant]
     Indication: RENAL FAILURE
     Route: 048
  6. SINGULAIR [Concomitant]
     Indication: CHRONIC OBSTRUCTIVE PULMONARY DISEASE
     Route: 048
  7. SERETIDE DISKUS [Concomitant]
     Indication: CHRONIC OBSTRUCTIVE PULMONARY DISEASE
     Route: 055

REACTIONS (1)
  - PERITONEAL EFFLUENT LEUKOCYTE COUNT INCREASED [None]
